FAERS Safety Report 11663627 (Version 1)
Quarter: 2015Q4

REPORT INFORMATION
  Report Type: Spontaneous
  Country: US (occurrence: None)
  Receive Date: 20151026
  Receipt Date: 20151026
  Transmission Date: 20160304
  Serious: Yes (Life-Threatening)
  Sender: FDA-Public Use
  Company Number: None

PATIENT
  Age: 41 Year
  Sex: Female
  Weight: 57.61 kg

DRUGS (4)
  1. LORATADINE. [Concomitant]
     Active Substance: LORATADINE
  2. AUGMENTIN [Suspect]
     Active Substance: AMOXICILLIN\CLAVULANATE POTASSIUM
     Indication: EAR INFECTION
     Route: 048
     Dates: start: 20151005, end: 20151005
  3. SINGULAIR [Concomitant]
     Active Substance: MONTELUKAST SODIUM
  4. DOXEPIN [Concomitant]
     Active Substance: DOXEPIN

REACTIONS (10)
  - Dyspnoea [None]
  - Pruritus [None]
  - Feeling hot [None]
  - Nausea [None]
  - Swelling [None]
  - Erythema [None]
  - Tinnitus [None]
  - Burning sensation [None]
  - Tachycardia [None]
  - Wheezing [None]

NARRATIVE: CASE EVENT DATE: 20151005
